FAERS Safety Report 7660261-2 (Version None)
Quarter: 2011Q3

REPORT INFORMATION
  Report Type: 
  Country: None (occurrence: None)
  Receive Date: 20110802
  Receipt Date: 20110722
  Transmission Date: 20111222
  Serious: Yes (Death)
  Sender: FDA-Public Use
  Company Number: UTC-008880

PATIENT
  Age: 63 Year
  Sex: Male
  Weight: 66.8 kg

DRUGS (3)
  1. DIURETICS (DIURETICS) [Concomitant]
  2. REMODULIN [Suspect]
     Indication: COR PULMONALE CHRONIC
     Dosage: 103.68 UG/KG (0.072 UG/KG, 1 IN D MIN), INTRAVENOUS
     Route: 042
     Dates: start: 20051101
  3. COUMADIN [Concomitant]

REACTIONS (1)
  - DEATH [None]
